FAERS Safety Report 5044288-5 (Version None)
Quarter: 2006Q3

REPORT INFORMATION
  Report Type: 
  Country: None (occurrence: None)
  Receive Date: 20060706
  Receipt Date: 20060609
  Transmission Date: 20061208
  Serious: Yes (Hospitalization)
  Sender: FDA-Public Use
  Company Number: PHBS2006JP08786

PATIENT
  Age: 75 Year
  Sex: Female

DRUGS (2)
  1. VOLTAREN [Suspect]
     Indication: PAIN
     Route: 048
  2. VALTREX [Concomitant]
     Indication: PARAESTHESIA
     Route: 048

REACTIONS (3)
  - DYSSTASIA [None]
  - EMBOLISM [None]
  - SPINAL DISORDER [None]
